FAERS Safety Report 4870199-1 (Version None)
Quarter: 2005Q4

REPORT INFORMATION
  Report Type: 
  Country: None (occurrence: None)
  Receive Date: 20051221
  Receipt Date: 20051207
  Transmission Date: 20060501
  Serious: Yes (Other)
  Sender: FDA-Public Use
  Company Number: ENT 2005-0162

PATIENT
  Age: 61 Year
  Sex: Female

DRUGS (1)
  1. COMTAN [Suspect]
     Dosage: ORAL
     Route: 048
     Dates: start: 20040101

REACTIONS (1)
  - WEIGHT DECREASED [None]
